FAERS Safety Report 4433495-8 (Version None)
Quarter: 2004Q3

REPORT INFORMATION
  Report Type: 
  Country: None (occurrence: None)
  Receive Date: 20040826
  Receipt Date: 20040820
  Transmission Date: 20050211
  Serious: Yes (Other)
  Sender: FDA-Public Use
  Company Number: FR-JNJFOC-20040705320

PATIENT
  Age: 46 Year
  Sex: Female
  Weight: 67 kg

DRUGS (9)
  1. REMICADE [Suspect]
     Route: 042
  2. REMICADE [Suspect]
     Route: 042
  3. REMICADE [Suspect]
     Route: 042
  4. REMICADE [Suspect]
     Route: 042
  5. REMICADE [Suspect]
     Indication: ANKYLOSING SPONDYLITIS
     Route: 042
  6. DEROXAT [Concomitant]
  7. MEPRONIZINE [Concomitant]
  8. MEPRONIZINE [Concomitant]
  9. SURGESTONE [Concomitant]

REACTIONS (4)
  - BURNING SENSATION [None]
  - MYELITIS [None]
  - PAIN IN EXTREMITY [None]
  - PARAESTHESIA [None]
